FAERS Safety Report 17587360 (Version 3)
Quarter: 2025Q1

REPORT INFORMATION
  Report Type: Report from Study
  Country: DE (occurrence: DE)
  Receive Date: 20200326
  Receipt Date: 20250130
  Transmission Date: 20250409
  Serious: Yes (Death)
  Sender: MYLAN
  Company Number: DE-ABBVIE-20K-062-3293283-00

PATIENT
  Age: 26 Year
  Sex: Male
  Weight: 85 kg

DRUGS (12)
  1. QUETIAPINE [Suspect]
     Active Substance: QUETIAPINE
     Indication: Schizoaffective disorder
     Dosage: 1 DOSAGE FORM, QD
     Route: 048
     Dates: start: 20180824
  2. QUETIAPINE [Suspect]
     Active Substance: QUETIAPINE
     Route: 048
     Dates: start: 20180824
  3. CLINDAMYCIN [Suspect]
     Active Substance: CLINDAMYCIN
     Indication: Abscess limb
     Dosage: 900 MILLIGRAM, QD
     Route: 048
     Dates: start: 20190918, end: 20190920
  4. PANTOPRAZOLE [Suspect]
     Active Substance: PANTOPRAZOLE
     Indication: Prophylaxis
     Dosage: 20 MILLIGRAM, QD
     Route: 048
     Dates: start: 20190917, end: 20190920
  5. CLARITHROMYCIN [Suspect]
     Active Substance: CLARITHROMYCIN
     Indication: Abscess limb
     Dosage: 1500 MILLIGRAM, QD
     Route: 048
     Dates: start: 20190917, end: 20190917
  6. MORPHINE SULFATE [Suspect]
     Active Substance: MORPHINE SULFATE
     Indication: Schizoaffective disorder
     Route: 048
     Dates: start: 20180824
  7. MORPHINE SULFATE [Suspect]
     Active Substance: MORPHINE SULFATE
     Indication: Drug dependence
     Dosage: 1 DOSAGE FORM, QD
     Route: 048
     Dates: start: 20180831
  8. MORPHINE SULFATE [Suspect]
     Active Substance: MORPHINE SULFATE
     Indication: Drug dependence
     Dosage: 700 MILLIGRAM, QD
     Route: 048
     Dates: start: 20180831
  9. MORPHINE SULFATE [Suspect]
     Active Substance: MORPHINE SULFATE
     Indication: Product substitution
  10. GLECAPREVIR\PIBRENTASVIR [Suspect]
     Active Substance: GLECAPREVIR\PIBRENTASVIR
     Indication: Chronic hepatitis C
     Dosage: 420 MILLIGRAM, QD
     Route: 048
     Dates: start: 20190725, end: 20190917
  11. GLECAPREVIR\PIBRENTASVIR [Suspect]
     Active Substance: GLECAPREVIR\PIBRENTASVIR
     Route: 048
     Dates: start: 2019
  12. IVY EXTRACT [Concomitant]
     Active Substance: IVY EXTRACT
     Indication: Product used for unknown indication
     Dosage: 10 MILLILITER, QD (COUGH LIQUID))
     Route: 065
     Dates: start: 20190919, end: 20190924

REACTIONS (8)
  - Fall [Fatal]
  - Poisoning [Fatal]
  - Urine alcohol test positive [Fatal]
  - Drug screen positive [Fatal]
  - Abscess limb [Recovering/Resolving]
  - Bronchitis [Recovered/Resolved]
  - Emotional disorder [Recovering/Resolving]
  - Hypertension [Not Recovered/Not Resolved]

NARRATIVE: CASE EVENT DATE: 20190916
